FAERS Safety Report 10473962 (Version 1)
Quarter: 2014Q3

REPORT INFORMATION
  Report Type: Spontaneous
  Country: AU (occurrence: AU)
  Receive Date: 20140924
  Receipt Date: 20140924
  Transmission Date: 20150326
  Serious: Yes (Hospitalization)
  Sender: FDA-Public Use
  Company Number: PHHY2014AU120213

PATIENT
  Sex: Female

DRUGS (2)
  1. EXELON PATCH [Suspect]
     Active Substance: RIVASTIGMINE
     Indication: MEMORY IMPAIRMENT
     Dosage: 4.6 MG, (FOR 7 DAYS)
     Route: 062
  2. EXELON PATCH [Suspect]
     Active Substance: RIVASTIGMINE
     Indication: PARKINSON^S DISEASE
     Dosage: 9.5 MG/24 HOURS (18 MG OR PATCH 10)
     Route: 062

REACTIONS (3)
  - Adverse drug reaction [Unknown]
  - Sleep disorder [Unknown]
  - Moaning [Unknown]

NARRATIVE: CASE EVENT DATE: 20140912
